FAERS Safety Report 7187869-5 (Version None)
Quarter: 2010Q4

REPORT INFORMATION
  Report Type: 
  Country: None (occurrence: None)
  Receive Date: 20101222
  Receipt Date: 20100709
  Transmission Date: 20110411
  Serious: No
  Sender: FDA-Public Use
  Company Number: US-AMGEN-TCS423425

PATIENT

DRUGS (1)
  1. ENBREL [Suspect]
     Indication: RHEUMATOID ARTHRITIS
     Dosage: 50 MG, QWK
     Route: 058
     Dates: start: 20090722

REACTIONS (6)
  - CARPAL TUNNEL DECOMPRESSION [None]
  - COUGH [None]
  - HYPOAESTHESIA [None]
  - LOCAL SWELLING [None]
  - PARAESTHESIA [None]
  - STRESS URINARY INCONTINENCE [None]
